FAERS Safety Report 4614936-X (Version None)
Quarter: 2005Q1

REPORT INFORMATION
  Report Type: 
  Country: None (occurrence: None)
  Receive Date: 20050322
  Receipt Date: 20050126
  Transmission Date: 20050727
  Serious: Yes (Other)
  Sender: FDA-Public Use
  Company Number: FR-ROCHE-393699

PATIENT
  Age: 33 Year
  Sex: Male
  Weight: 77.8 kg

DRUGS (3)
  1. SAQUINAVIR [Suspect]
     Route: 048
     Dates: start: 20050124, end: 20050124
  2. RIFAMPICIN [Suspect]
     Route: 048
     Dates: start: 20050110, end: 20050124
  3. RITONAVIR [Suspect]
     Route: 048
     Dates: start: 20050124, end: 20050124

REACTIONS (7)
  - ABDOMINAL PAIN [None]
  - CONSTIPATION [None]
  - DRY MOUTH [None]
  - HEPATOMEGALY [None]
  - NAUSEA [None]
  - TRANSAMINASES INCREASED [None]
  - WHITE BLOOD CELL COUNT INCREASED [None]
